FAERS Safety Report 19743093 (Version 1)
Quarter: 2021Q3

REPORT INFORMATION
  Report Type: Spontaneous
  Country: US (occurrence: US)
  Receive Date: 20210823
  Receipt Date: 20210823
  Transmission Date: 20211014
  Serious: Yes (Life-Threatening, Other)
  Sender: FDA-Public Use
  Company Number: None

PATIENT
  Age: 77 Year
  Sex: Female
  Weight: 72.9 kg

DRUGS (4)
  1. NORWEGIAN COD LIVER OIL PILL [Concomitant]
  2. METOPROLOL TARTRATE 50 MG X 2 [Suspect]
     Active Substance: METOPROLOL TARTRATE
     Indication: HYPERTENSION
     Dosage: ?          QUANTITY:2 TABLET(S);?
     Route: 048
  3. SPIRONOLACTONE 25 MG. 1 PER DAY [Suspect]
     Active Substance: SPIRONOLACTONE
  4. TYLENOL [Concomitant]
     Active Substance: ACETAMINOPHEN

REACTIONS (9)
  - Amnesia [None]
  - Confusional state [None]
  - Hostility [None]
  - Mood altered [None]
  - Psychopathic personality [None]
  - Drug interaction [None]
  - Verbal abuse [None]
  - Psychotic disorder [None]
  - Anger [None]

NARRATIVE: CASE EVENT DATE: 20210822
